APPROVED DRUG PRODUCT: NALOXONE HYDROCHLORIDE AND PENTAZOCINE HYDROCHLORIDE
Active Ingredient: NALOXONE HYDROCHLORIDE; PENTAZOCINE HYDROCHLORIDE
Strength: EQ 0.5MG BASE;EQ 50MG BASE
Dosage Form/Route: TABLET;ORAL
Application: A075523 | Product #001 | TE Code: AB
Applicant: SUN PHARMACEUTICAL INDUSTRIES LTD
Approved: Mar 17, 2000 | RLD: No | RS: No | Type: RX